FAERS Safety Report 4880440-7 (Version None)
Quarter: 2005Q4

REPORT INFORMATION
  Report Type: 
  Country: None (occurrence: None)
  Receive Date: 20051223
  Receipt Date: 20051128
  Transmission Date: 20060501
  Serious: No
  Sender: FDA-Public Use
  Company Number: 05P-163-0318147-00

PATIENT
  Age: 59 Year
  Sex: Female
  Weight: 78.4723 kg

DRUGS (1)
  1. HUMIRA                     (ADALIMUMAB) [Suspect]
     Indication: PSORIATIC ARTHROPATHY
     Dosage: 40 MG, 1 IN 1 D, SUBCUTAENOUS
     Route: 058
     Dates: start: 20051026, end: 20051108

REACTIONS (2)
  - COUGH [None]
  - NASAL CONGESTION [None]
